FAERS Safety Report 5928642-2 (Version None)
Quarter: 2008Q4

REPORT INFORMATION
  Report Type: 
  Country: None (occurrence: None)
  Receive Date: 20081023
  Receipt Date: 20081020
  Transmission Date: 20090506
  Serious: Yes (Other)
  Sender: FDA-Public Use
  Company Number: US-B.I. PHARMACEUTICALS,INC./RIDGEFIELD-2008-BP-16056BP

PATIENT
  Sex: Female

DRUGS (11)
  1. SPIRIVA [Suspect]
     Indication: CHRONIC OBSTRUCTIVE PULMONARY DISEASE
     Dosage: 18MCG
     Route: 048
     Dates: start: 20070501
  2. MUCINEX [Concomitant]
  3. ADVAIR DISKUS 100/50 [Concomitant]
  4. HYZAAR [Concomitant]
  5. NEXIUM [Concomitant]
     Dosage: 40MG
  6. FLONASE [Concomitant]
  7. LORATADINE [Concomitant]
     Dosage: 10MG
  8. SINGULAIR [Concomitant]
  9. ALBUTEROL [Concomitant]
  10. ACTONEL [Concomitant]
     Indication: BONE DISORDER
  11. VITAMINS [Concomitant]

REACTIONS (3)
  - CHRONIC LYMPHOCYTIC LEUKAEMIA [None]
  - FEELING ABNORMAL [None]
  - HEADACHE [None]
